FAERS Safety Report 13883417 (Version 1)
Quarter: 2017Q3

REPORT INFORMATION
  Report Type: Spontaneous
  Country: US (occurrence: US)
  Receive Date: 20170818
  Receipt Date: 20170818
  Transmission Date: 20171127
  Serious: Yes (Death)
  Sender: FDA-Public Use
  Company Number: US-TEIKOKU PHARMA USA-TPU2016-00103

PATIENT
  Sex: Female

DRUGS (3)
  1. LIDODERM [Suspect]
     Active Substance: LIDOCAINE
     Indication: POST HERPETIC NEURALGIA
     Dosage: WEARS 3-4 PATCHES DAILY FOR ABOUT 12 HOURS ON THE SIDE OF HER BODY AND ON HER BACK AND UNDER BREAST
     Route: 061
  2. UNKNOWN PAIN PILLS [Concomitant]
     Active Substance: UNSPECIFIED INGREDIENT
     Indication: PAIN
     Dosage: 2-3 A DAY AS NEEDED
  3. OTHER UNKNOWN MEDICATIONS [Concomitant]
     Active Substance: UNSPECIFIED INGREDIENT

REACTIONS (3)
  - Incorrect dose administered [Not Recovered/Not Resolved]
  - Pain [Not Recovered/Not Resolved]
  - Death [None]

NARRATIVE: CASE EVENT DATE: 201704
